FAERS Safety Report 19732147 (Version 2)
Quarter: 2022Q1

REPORT INFORMATION
  Report Type: Spontaneous
  Country: DE (occurrence: DE)
  Receive Date: 20210820
  Receipt Date: 20220209
  Transmission Date: 20220423
  Serious: Yes (Hospitalization)
  Sender: FDA-Public Use
  Company Number: DE-ABBVIE-21K-062-3740808-00

PATIENT
  Age: 41 Year
  Sex: Male

DRUGS (4)
  1. METHOTREXATE [Suspect]
     Active Substance: METHOTREXATE
     Indication: Rheumatoid arthritis
     Dosage: 15 MG (END DATE BETWEEN 26 SEP 2017 28 FEB 2018)
     Route: 065
     Dates: start: 201703, end: 20170926
  2. METHOTREXATE [Suspect]
     Active Substance: METHOTREXATE
     Dosage: 10 MG (START DATE BETWEEN 26 SEP 2017 28 FEB 2018 END DATE BETWEEN 26 OCT 2020 08 JUN 2021)
     Route: 065
     Dates: start: 20170926, end: 20201026
  3. HUMIRA [Suspect]
     Active Substance: ADALIMUMAB
     Indication: Rheumatoid arthritis
     Dosage: 40 MG, Q2W
     Route: 058
     Dates: start: 201804, end: 20200316
  4. HUMIRA [Suspect]
     Active Substance: ADALIMUMAB
     Dosage: UNK
     Route: 065
     Dates: start: 201703, end: 201802

REACTIONS (5)
  - Intervertebral disc annular tear [Unknown]
  - Atrial septal defect acquired [Not Recovered/Not Resolved]
  - Aortic valve incompetence [Not Recovered/Not Resolved]
  - Enanthema [Unknown]
  - Haemorrhagic disorder [Unknown]

NARRATIVE: CASE EVENT DATE: 20200803
